FAERS Safety Report 17890361 (Version 1)
Quarter: 2020Q2

REPORT INFORMATION
  Report Type: Spontaneous
  Country: DE (occurrence: DE)
  Receive Date: 20200612
  Receipt Date: 20200612
  Transmission Date: 20200714
  Serious: Yes (Other)
  Sender: FDA-Public Use
  Company Number: DE-SHIRE-DE202019275

PATIENT

DRUGS (1)
  1. RESOLOR [Suspect]
     Active Substance: PRUCALOPRIDE SUCCINATE
     Indication: MULTIPLE SCLEROSIS
     Route: 065

REACTIONS (3)
  - Dysphagia [Unknown]
  - Multiple sclerosis [Unknown]
  - Intentional product use issue [Unknown]
